FAERS Safety Report 24985276 (Version 1)
Quarter: 2025Q1

REPORT INFORMATION
  Report Type: Spontaneous
  Country: US (occurrence: US)
  Receive Date: 20250219
  Receipt Date: 20250219
  Transmission Date: 20250409
  Serious: Yes (Other)
  Sender: OCTAPHARMA
  Company Number: US-OCTA-2025000121

PATIENT
  Age: 32 Year
  Sex: Female
  Weight: 74 kg

DRUGS (3)
  1. PANZYGA [Suspect]
     Active Substance: HUMAN IMMUNOGLOBULIN G
     Indication: Stiff person syndrome
     Dosage: TREATMENT OVER 2 DAYS
     Route: 042
     Dates: start: 20250205, end: 20250206
  2. BENADRYL [Concomitant]
     Active Substance: DIPHENHYDRAMINE HYDROCHLORIDE
     Indication: Premedication
     Route: 048
  3. ACETAMINOPHEN [Concomitant]
     Active Substance: ACETAMINOPHEN
     Indication: Premedication
     Route: 048

REACTIONS (4)
  - Urticaria [Recovered/Resolved]
  - Pruritus [Recovered/Resolved]
  - Lip swelling [Not Recovered/Not Resolved]
  - Dyspnoea [Recovered/Resolved]

NARRATIVE: CASE EVENT DATE: 20250205
